FAERS Safety Report 5310840-2 (Version None)
Quarter: 2007Q2

REPORT INFORMATION
  Report Type: 
  Country: None (occurrence: None)
  Receive Date: 20070428
  Receipt Date: 20070416
  Transmission Date: 20071010
  Serious: Yes (Hospitalization)
  Sender: FDA-Public Use
  Company Number: US-PFIZER INC-2004240592US

PATIENT
  Sex: Female
  Weight: 74.8 kg

DRUGS (6)
  1. SUTENT [Suspect]
     Indication: RENAL CELL CARCINOMA STAGE UNSPECIFIED
     Route: 048
  2. LEXAPRO [Concomitant]
     Route: 048
  3. NEXIUM [Concomitant]
     Route: 048
     Dates: start: 20040101, end: 20041015
  4. XANAX [Concomitant]
     Route: 048
  5. MAGIC MOUTHWASH [Concomitant]
     Route: 048
     Dates: start: 20040824, end: 20041109
  6. MOTRIN [Concomitant]
     Route: 048
     Dates: start: 20040904, end: 20041130

REACTIONS (3)
  - CONVULSION [None]
  - REVERSIBLE POSTERIOR LEUKOENCEPHALOPATHY SYNDROME [None]
  - SYNCOPE [None]
